FAERS Safety Report 14468762 (Version 1)
Quarter: 2018Q1

REPORT INFORMATION
  Report Type: Spontaneous
  Country: DE (occurrence: DE)
  Receive Date: 20180131
  Receipt Date: 20180131
  Transmission Date: 20180509
  Serious: Yes (Other)
  Sender: FDA-Public Use
  Company Number: DE-ASTELLAS-2018US005347

PATIENT
  Age: 46 Year
  Sex: Female

DRUGS (2)
  1. BETMIGA [Suspect]
     Active Substance: MIRABEGRON
     Dosage: 0.5 DF, UNKNOWN FREQ (TABLET WAS DIVIDED)
     Route: 065
  2. BETMIGA [Suspect]
     Active Substance: MIRABEGRON
     Indication: INCONTINENCE
     Route: 065

REACTIONS (4)
  - Off label use [Unknown]
  - Intentional product misuse [Unknown]
  - Rash pustular [Unknown]
  - Hepatic enzyme increased [Unknown]
